FAERS Safety Report 4693620-0 (Version None)
Quarter: 2005Q2

REPORT INFORMATION
  Report Type: 
  Country: None (occurrence: None)
  Receive Date: 20050615
  Receipt Date: 20050601
  Transmission Date: 20051028
  Serious: Yes (Life-Threatening, Other)
  Sender: FDA-Public Use
  Company Number: US_0506118163

PATIENT
  Sex: Male

DRUGS (1)
  1. HUMULIN N [Suspect]

REACTIONS (3)
  - LOSS OF CONSCIOUSNESS [None]
  - RESUSCITATION [None]
  - ROAD TRAFFIC ACCIDENT [None]
